FAERS Safety Report 5022862-X (Version None)
Quarter: 2006Q2

REPORT INFORMATION
  Report Type: 
  Country: None (occurrence: None)
  Receive Date: 20060426
  Receipt Date: 20060321
  Transmission Date: 20061013
  Serious: Yes (Other)
  Sender: FDA-Public Use
  Company Number: 2006041504

PATIENT
  Age: 86 Year
  Sex: Female
  Weight: 61.2356 kg

DRUGS (5)
  1. LYRICA [Suspect]
     Indication: PAIN
     Dosage: 150 MG (75 MG,2 IN 1 D),ORAL
     Route: 048
     Dates: start: 20060101
  2. VITAMINS (VITAMINS) [Concomitant]
  3. MINERALS NOS (MINERALS NOS) [Concomitant]
  4. ALEVE [Concomitant]
  5. IBUPROFEN [Concomitant]

REACTIONS (5)
  - ABNORMAL SENSATION IN EYE [None]
  - CORRECTIVE LENS USER [None]
  - EYE DISORDER [None]
  - PAIN [None]
  - VISION BLURRED [None]
